APPROVED DRUG PRODUCT: CYCLOSET
Active Ingredient: BROMOCRIPTINE MESYLATE
Strength: EQ 0.8MG BASE
Dosage Form/Route: TABLET;ORAL
Application: N020866 | Product #001
Applicant: VEROSCIENCE LLC
Approved: May 5, 2009 | RLD: Yes | RS: Yes | Type: RX

PATENTS:
Patent 8877708 | Expires: Jun 7, 2030
Patent 9352025 | Expires: Jun 7, 2030
Patent 9352025 | Expires: Jun 7, 2030
Patent 9352025 | Expires: Jun 7, 2030
Patent 9700555 | Expires: Apr 30, 2032
Patent 9700555 | Expires: Apr 30, 2032
Patent 9700555 | Expires: Apr 30, 2032
Patent 9700555 | Expires: Apr 30, 2032
Patent 9700555 | Expires: Apr 30, 2032
Patent 9700555 | Expires: Apr 30, 2032
Patent 9993474 | Expires: Apr 30, 2032
Patent 9993474 | Expires: Apr 30, 2032
Patent 9993474 | Expires: Apr 30, 2032
Patent 9895422 | Expires: Jun 7, 2030
Patent 9895422 | Expires: Jun 7, 2030
Patent 9895422 | Expires: Jun 7, 2030
Patent 9895422 | Expires: Jun 7, 2030
Patent 9895422 | Expires: Jun 7, 2030
Patent 9895422 | Expires: Jun 7, 2030
Patent 9895422 | Expires: Jun 7, 2030
Patent 9192576 | Expires: Apr 30, 2032
Patent 9522117 | Expires: Apr 30, 2032
Patent 9352025 | Expires: Jun 7, 2030
Patent 9352025 | Expires: Jun 7, 2030
Patent 9352025 | Expires: Jun 7, 2030
Patent 9700555 | Expires: Apr 30, 2032
Patent 9700555 | Expires: Apr 30, 2032
Patent 9700555 | Expires: Apr 30, 2032
Patent 9700555 | Expires: Apr 30, 2032
Patent 9700555 | Expires: Apr 30, 2032
Patent 9700555 | Expires: Apr 30, 2032
Patent 9700555 | Expires: Apr 30, 2032
Patent 9352025 | Expires: Jun 7, 2030
Patent 9993474 | Expires: Apr 30, 2032
Patent 9993474 | Expires: Apr 30, 2032
Patent 9993474 | Expires: Apr 30, 2032
Patent 9993474 | Expires: Apr 30, 2032
Patent 9993474 | Expires: Apr 30, 2032
Patent 9993474 | Expires: Apr 30, 2032
Patent 9700555 | Expires: Apr 30, 2032
Patent 9700555 | Expires: Apr 30, 2032
Patent 9895422 | Expires: Jun 7, 2030
Patent 9895422 | Expires: Jun 7, 2030
Patent 9700555 | Expires: Apr 30, 2032
Patent 9352025 | Expires: Jun 7, 2030
Patent 9352025 | Expires: Jun 7, 2030
Patent 9522117 | Expires: Apr 30, 2032
Patent 10688094 | Expires: Apr 30, 2032
Patent 10688094 | Expires: Apr 30, 2032
Patent 10688094 | Expires: Apr 30, 2032
Patent 10688094 | Expires: Apr 30, 2032
Patent 10688094 | Expires: Apr 30, 2032
Patent 10688094 | Expires: Apr 30, 2032
Patent 10688094 | Expires: Apr 30, 2032
Patent 10688094 | Expires: Apr 30, 2032
Patent 10688094 | Expires: Apr 30, 2032
Patent 10688094 | Expires: Apr 30, 2032
Patent 10688094 | Expires: Apr 30, 2032
Patent 10688094 | Expires: Apr 30, 2032
Patent 10688094 | Expires: Apr 30, 2032
Patent 10688094 | Expires: Apr 30, 2032
Patent 10688094 | Expires: Apr 30, 2032
Patent 10688094 | Expires: Apr 30, 2032
Patent 10688094 | Expires: Apr 30, 2032
Patent 10688094 | Expires: Apr 30, 2032
Patent 10688094 | Expires: Apr 30, 2032
Patent 10688155 | Expires: Jun 7, 2030
Patent 10688155 | Expires: Jun 7, 2030
Patent 10688155 | Expires: Jun 7, 2030
Patent 10688155 | Expires: Jun 7, 2030
Patent 10688155 | Expires: Jun 7, 2030
Patent 10688155 | Expires: Jun 7, 2030
Patent 10688155 | Expires: Jun 7, 2030
Patent 10688155 | Expires: Jun 7, 2030
Patent 10688155 | Expires: Jun 7, 2030
Patent 10688155 | Expires: Jun 7, 2030
Patent 10688155 | Expires: Jun 7, 2030
Patent 10688155 | Expires: Jun 7, 2030
Patent 10688155 | Expires: Jun 7, 2030
Patent 10688155 | Expires: Jun 7, 2030
Patent 10688155 | Expires: Jun 7, 2030
Patent 10688155 | Expires: Jun 7, 2030
Patent 10688155 | Expires: Jun 7, 2030
Patent 10688155 | Expires: Jun 7, 2030
Patent 10688155 | Expires: Jun 7, 2030
Patent 10688155 | Expires: Jun 7, 2030
Patent 10688155 | Expires: Jun 7, 2030
Patent 10688155 | Expires: Jun 7, 2030
Patent 10688155 | Expires: Jun 7, 2030
Patent 10688155 | Expires: Jun 7, 2030
Patent 10688155 | Expires: Jun 7, 2030
Patent 10688155 | Expires: Jun 7, 2030
Patent 9993474 | Expires: Apr 30, 2032
Patent 10688155 | Expires: Jun 7, 2030
Patent 10688155 | Expires: Jun 7, 2030
Patent 10688155 | Expires: Jun 7, 2030
Patent 10688155 | Expires: Jun 7, 2030
Patent 10688155 | Expires: Jun 7, 2030
Patent 10688155 | Expires: Jun 7, 2030
Patent 10688155 | Expires: Jun 7, 2030
Patent 10688155 | Expires: Jun 7, 2030
Patent 10688155 | Expires: Jun 7, 2030
Patent 10688155 | Expires: Jun 7, 2030
Patent 10688155 | Expires: Jun 7, 2030
Patent 10688155 | Expires: Jun 7, 2030
Patent 10688155 | Expires: Jun 7, 2030
Patent 10688155 | Expires: Jun 7, 2030
Patent 10688155 | Expires: Jun 7, 2030
Patent 10688155 | Expires: Jun 7, 2030
Patent 10688155 | Expires: Jun 7, 2030
Patent 10688155 | Expires: Jun 7, 2030
Patent 10688155 | Expires: Jun 7, 2030
Patent 10688155 | Expires: Jun 7, 2030
Patent 10688155 | Expires: Jun 7, 2030
Patent 10688155 | Expires: Jun 7, 2030
Patent 10688155 | Expires: Jun 7, 2030
Patent 11000522 | Expires: Apr 30, 2032
Patent 11000522 | Expires: Apr 30, 2032
Patent 11000522 | Expires: Apr 30, 2032
Patent 11000522 | Expires: Apr 30, 2032
Patent 8613947 | Expires: Apr 30, 2032
Patent 11666567 | Expires: Apr 30, 2032
Patent 11666567 | Expires: Apr 30, 2032
Patent 11666567 | Expires: Apr 30, 2032
Patent 11666567 | Expires: Apr 30, 2032
Patent 8431155 | Expires: Apr 30, 2032